FAERS Safety Report 20648814 (Version 1)
Quarter: 2022Q1

REPORT INFORMATION
  Report Type: Report from Study
  Country: US (occurrence: US)
  Receive Date: 20220329
  Receipt Date: 20220329
  Transmission Date: 20220423
  Serious: Yes (Other)
  Sender: FDA-Public Use
  Company Number: US-GILEAD-2022-0575078

PATIENT
  Age: 28 Year
  Sex: Male

DRUGS (15)
  1. AZTREONAM LYSINE [Suspect]
     Active Substance: AZTREONAM LYSINE
     Indication: Cystic fibrosis lung
     Dosage: 75 MG, TID, 28/28
     Route: 055
  2. AZTREONAM LYSINE [Suspect]
     Active Substance: AZTREONAM LYSINE
     Indication: Bacterial disease carrier
  3. KLONOPIN [Concomitant]
     Active Substance: CLONAZEPAM
     Dosage: 0.5 MG
     Dates: start: 20200929
  4. CREON [Concomitant]
     Active Substance: PANCRELIPASE AMYLASE\PANCRELIPASE LIPASE\PANCRELIPASE PROTEASE
     Dosage: 12K-38K-60 CAPSULE DR
     Dates: start: 20200929
  5. OXCARBAZEPINE [Concomitant]
     Active Substance: OXCARBAZEPINE
     Dosage: 300 MG/5ML ORAL SUSP
     Dates: start: 20200929
  6. TOBI [Concomitant]
     Active Substance: TOBRAMYCIN
     Dosage: 300 MG/5ML AMPUL-NEB
     Dates: start: 20200929
  7. ESZOPICLONE [Concomitant]
     Active Substance: ESZOPICLONE
     Dosage: 1MG
     Dates: start: 20200929
  8. ALBUTEROL SULFATE [Concomitant]
     Active Substance: ALBUTEROL SULFATE
     Dosage: 1.25MG/3ML VIAL-NEB
     Dates: start: 20200929
  9. FLUTICASONE PROPIONATE [Concomitant]
     Active Substance: FLUTICASONE PROPIONATE
     Dosage: 50 MCG SPRAY
     Dates: start: 20200929
  10. VITAMIN D3 [Concomitant]
     Active Substance: CHOLECALCIFEROL
     Dosage: 25 MCG
     Dates: start: 20200929
  11. CALCIUM [Concomitant]
     Active Substance: CALCIUM
     Dosage: 600 MG
     Dates: start: 20200929
  12. OLANZAPINE [Concomitant]
     Active Substance: OLANZAPINE
     Dosage: 5MG
     Dates: start: 20200929
  13. PULMOZYME [Concomitant]
     Active Substance: DORNASE ALFA
     Dosage: 1 MG/ML AMPUL
     Dates: start: 20200929
  14. TRIKAFTA [Concomitant]
     Active Substance: ELEXACAFTOR\IVACAFTOR\TEZACAFTOR
     Dosage: 100-50-75 TABLET SEQ
     Dates: start: 20200929
  15. ADEK [Concomitant]
     Dosage: UNKNOWN
     Dates: start: 20200929

REACTIONS (2)
  - Renal surgery [Unknown]
  - Off label use [Not Recovered/Not Resolved]

NARRATIVE: CASE EVENT DATE: 20220201
